FAERS Safety Report 6622232-4 (Version None)
Quarter: 2010Q1

REPORT INFORMATION
  Report Type: 
  Country: None (occurrence: None)
  Receive Date: 20100310
  Receipt Date: 20100302
  Transmission Date: 20100710
  Serious: Yes (Hospitalization)
  Sender: FDA-Public Use
  Company Number: US-BIOGENIDEC-2010BI007220

PATIENT
  Age: 64 Year
  Sex: Male

DRUGS (2)
  1. AVONEX [Suspect]
     Indication: MULTIPLE SCLEROSIS
     Route: 030
     Dates: start: 19981014, end: 20090101
  2. AVONEX [Suspect]
     Route: 030
     Dates: start: 20100226

REACTIONS (2)
  - MULTIPLE SCLEROSIS [None]
  - MYOCARDIAL INFARCTION [None]
